FAERS Safety Report 6553455-0 (Version None)
Quarter: 2010Q1

REPORT INFORMATION
  Report Type: 
  Country: None (occurrence: None)
  Receive Date: 20100122
  Receipt Date: 20100106
  Transmission Date: 20100710
  Serious: Yes (Hospitalization)
  Sender: FDA-Public Use
  Company Number: 2010AC000043

PATIENT
  Sex: Female

DRUGS (26)
  1. DIGOXIN [Suspect]
     Dosage: .25 MG;QD;PO
     Route: 048
     Dates: start: 20080301, end: 20090301
  2. RANTIDINE [Concomitant]
  3. GABAPENTIN [Concomitant]
  4. AMITRIPTYLINE HCL [Concomitant]
  5. IMIPRAMINE [Concomitant]
  6. HYDROCODONE [Concomitant]
  7. IBUPROFEN [Concomitant]
  8. KETEK [Concomitant]
  9. AMOXICILLIN [Concomitant]
  10. DUONEB [Concomitant]
  11. PRILOSEC [Concomitant]
  12. CEPHALEXIN [Concomitant]
  13. NAPROXEN [Concomitant]
  14. CLINDAMYCIN [Concomitant]
  15. LISINOPRIL [Concomitant]
  16. AMIODARONE HCL [Concomitant]
  17. METOPROLOL TARTRATE [Concomitant]
  18. SIMVASTATIN [Concomitant]
  19. LEXAPRO [Concomitant]
  20. BUSPAR [Concomitant]
  21. FUROSEMIDE [Concomitant]
  22. SPIRONOLACTONE [Concomitant]
  23. DOXYCYCLINE HCL [Concomitant]
  24. NITROGLYCERIN [Concomitant]
  25. IPRATROPIUM [Concomitant]
  26. ALBUTEROL [Concomitant]

REACTIONS (4)
  - ECONOMIC PROBLEM [None]
  - EMOTIONAL DISORDER [None]
  - INJURY [None]
  - PAIN [None]
